FAERS Safety Report 5275090-7 (Version None)
Quarter: 2007Q1

REPORT INFORMATION
  Report Type: 
  Country: None (occurrence: None)
  Receive Date: 20070326
  Receipt Date: 20070315
  Transmission Date: 20070707
  Serious: Yes (Hospitalization)
  Sender: FDA-Public Use
  Company Number: FR-JNJFOC-20070304376

PATIENT
  Sex: Male

DRUGS (4)
  1. RISPERDAL CONSTA [Suspect]
     Indication: PSYCHOTIC DISORDER
     Route: 030
  2. NOZINAN [Concomitant]
     Indication: PSYCHOTIC DISORDER
     Route: 065
  3. LOXAPAC [Concomitant]
     Indication: PSYCHOTIC DISORDER
     Route: 065
  4. TERALITHE [Concomitant]
     Route: 065

REACTIONS (4)
  - BLOOD CREATINE PHOSPHOKINASE INCREASED [None]
  - COUGH [None]
  - PYREXIA [None]
  - URINARY TRACT INFECTION [None]
